FAERS Safety Report 16937029 (Version 1)
Quarter: 2019Q4

REPORT INFORMATION
  Report Type: Spontaneous
  Country: US (occurrence: US)
  Receive Date: 20191018
  Receipt Date: 20191018
  Transmission Date: 20200122
  Serious: Yes (Hospitalization, Other)
  Sender: FDA-Public Use
  Company Number: US-JNJFOC-20191013686

PATIENT
  Age: 39 Year
  Sex: Male

DRUGS (4)
  1. DEXMEDETOMIDINE. [Suspect]
     Active Substance: DEXMEDETOMIDINE
     Indication: AGITATION
     Dosage: HIGH DOSE
     Route: 065
  2. PROPOFOL. [Suspect]
     Active Substance: PROPOFOL
     Indication: AGITATION
     Dosage: HIGH DOSE
     Route: 065
  3. FENTANYL. [Suspect]
     Active Substance: FENTANYL
     Indication: AGITATION
     Dosage: HIGH DOSE
     Route: 065
  4. MIDAZOLAM [Suspect]
     Active Substance: MIDAZOLAM HYDROCHLORIDE
     Indication: AGITATION
     Dosage: HIGH DOSE
     Route: 065

REACTIONS (7)
  - Aggression [Recovered/Resolved]
  - Product use in unapproved indication [Unknown]
  - Tachypnoea [Unknown]
  - Delirium [Recovered/Resolved]
  - Off label use [Unknown]
  - Drug withdrawal syndrome [Recovered/Resolved]
  - Agitation [Recovered/Resolved]
